FAERS Safety Report 17221668 (Version 2)
Quarter: 2020Q1

REPORT INFORMATION
  Report Type: Spontaneous
  Country: JP (occurrence: JP)
  Receive Date: 20200101
  Receipt Date: 20200129
  Transmission Date: 20200409
  Serious: Yes (Other)
  Sender: FDA-Public Use
  Company Number: JP-AMGEN-JPNSP2019202351

PATIENT
  Age: 75 Year
  Sex: Female

DRUGS (6)
  1. PRALIA [Suspect]
     Active Substance: DENOSUMAB
     Indication: OSTEOPOROSIS
     Dosage: 60 MILLIGRAM, Q6MO
     Route: 058
     Dates: start: 20180829
  2. MAGNESIUM OXIDE. [Concomitant]
     Active Substance: MAGNESIUM OXIDE
     Dosage: 250 MG
     Route: 048
  3. EDIROL [Concomitant]
     Active Substance: ELDECALCITOL
     Dosage: 0.5 MICROGRAM
     Route: 048
     Dates: end: 20191126
  4. MOHRUS [Concomitant]
     Active Substance: KETOPROFEN
     Dosage: 20 MILLIGRAM
  5. MERCAZOLE [Concomitant]
     Active Substance: CARBIMAZOLE
     Dosage: 5 MILLIGRAM
     Route: 048
  6. MAGNESIUM OXIDE. [Concomitant]
     Active Substance: MAGNESIUM OXIDE
     Dosage: 250 MILLIGRAM
     Route: 048

REACTIONS (2)
  - Osteomyelitis [Unknown]
  - Gingival ulceration [Not Recovered/Not Resolved]
